FAERS Safety Report 4885642-1 (Version None)
Quarter: 2005Q4

REPORT INFORMATION
  Report Type: 
  Country: None (occurrence: None)
  Receive Date: 20051220
  Receipt Date: 20051004
  Transmission Date: 20060501
  Serious: Yes (Hospitalization)
  Sender: FDA-Public Use
  Company Number: HQWYE834705OCT05

PATIENT
  Sex: Female

DRUGS (1)
  1. EFFEXOR XR [Suspect]
     Dosage: 112. MG 1X PER 1 DAY, ORAL
     Route: 048
     Dates: start: 20020101

REACTIONS (1)
  - VAGINAL HAEMORRHAGE [None]
